FAERS Safety Report 4487834-2 (Version None)
Quarter: 2004Q4

REPORT INFORMATION
  Report Type: 
  Country: None (occurrence: None)
  Receive Date: 20041025
  Receipt Date: 20041007
  Transmission Date: 20050328
  Serious: Yes (Hospitalization)
  Sender: FDA-Public Use
  Company Number: S04-FRA-00774-01

PATIENT
  Age: 78 Year
  Sex: Male
  Weight: 67 kg

DRUGS (11)
  1. CITALOPRAM HYDROBROMIDE [Suspect]
     Indication: DEPRESSION
  2. CITALOPRAM HYDROBROMIDE [Suspect]
     Indication: MAJOR DEPRESSION
  3. SEROPRAM (CITALOPARM HYDROBROMIDE) [Suspect]
     Indication: DEPRESSION
     Dosage: 20 MG QD PO
     Route: 048
     Dates: start: 20030801, end: 20031201
  4. SEROPRAM (CITALOPARM HYDROBROMIDE) [Suspect]
     Indication: MAJOR DEPRESSION
     Dosage: 20 MG QD PO
     Route: 048
     Dates: start: 20030801, end: 20031201
  5. RISPERDAL [Suspect]
     Indication: ANXIETY
     Dosage: 1 MG QD PO
     Route: 048
     Dates: end: 20031201
  6. SEDATIVE NEUROLEPTIC (NOS) [Concomitant]
  7. LYSNAXIA (PRAZEPAM) [Concomitant]
  8. EQUANIL [Concomitant]
  9. HEPT-A-MYL (HEPTAMINOL HYDROCHLORIDE) [Concomitant]
  10. ZOPICLONE [Concomitant]
  11. ZOXAN (DOXAZOSIN MESILATE) [Concomitant]

REACTIONS (2)
  - NERVOUSNESS [None]
  - PARKINSON'S DISEASE [None]
